FAERS Safety Report 21147575 (Version 1)
Quarter: 2022Q3

REPORT INFORMATION
  Report Type: Spontaneous
  Country: US (occurrence: None)
  Receive Date: 20220729
  Receipt Date: 20220729
  Transmission Date: 20221027
  Serious: Yes (Other)
  Sender: FDA-Public Use
  Company Number: US-MLMSERVICE-20220714-3674307-1

PATIENT
  Age: 68 Year
  Sex: Female

DRUGS (4)
  1. AMOXICILLIN [Suspect]
     Active Substance: AMOXICILLIN
     Indication: Mycobacterium abscessus infection
     Dosage: UNKNOWN
     Route: 065
     Dates: start: 202103
  2. AMOXICILLIN [Suspect]
     Active Substance: AMOXICILLIN
     Dosage: UNKNOWN
     Route: 065
     Dates: start: 202103
  3. CILASTATIN\IMIPENEM\RELEBACTAM MONOHYDRATE [Suspect]
     Active Substance: CILASTATIN\IMIPENEM\RELEBACTAM MONOHYDRATE
     Indication: Mycobacterium abscessus infection
     Dosage: UNKNOWN
     Route: 065
     Dates: start: 202103
  4. CILASTATIN\IMIPENEM\RELEBACTAM MONOHYDRATE [Suspect]
     Active Substance: CILASTATIN\IMIPENEM\RELEBACTAM MONOHYDRATE
     Dosage: UNKNOWN
     Route: 065

REACTIONS (3)
  - Abdominal pain [Unknown]
  - Diarrhoea [Unknown]
  - Leukopenia [Unknown]
